FAERS Safety Report 5519747-9 (Version None)
Quarter: 2007Q4

REPORT INFORMATION
  Report Type: 
  Country: None (occurrence: None)
  Receive Date: 20071116
  Receipt Date: 20070802
  Transmission Date: 20080405
  Serious: No
  Sender: FDA-Public Use
  Company Number: A0667917A

PATIENT
  Age: 46 Year
  Sex: Female

DRUGS (8)
  1. COREG CR [Suspect]
     Indication: CHEST PAIN
     Dosage: 10MG PER DAY
     Route: 048
     Dates: start: 20070706, end: 20070720
  2. TARKA [Concomitant]
  3. BYETTA [Concomitant]
  4. NEXIUM [Concomitant]
  5. ASPIRIN [Concomitant]
  6. MULTI-VITAMIN [Concomitant]
  7. CALCIUM [Concomitant]
     Dosage: 1500MG PER DAY
  8. ASCORBIC ACID [Concomitant]
     Dosage: 1000MG PER DAY

REACTIONS (1)
  - CHEST PAIN [None]
